FAERS Safety Report 4322877-0 (Version None)
Quarter: 2004Q1

REPORT INFORMATION
  Report Type: 
  Country: None (occurrence: None)
  Receive Date: 20040322
  Receipt Date: 20040308
  Transmission Date: 20041129
  Serious: Yes (Other)
  Sender: FDA-Public Use
  Company Number: GBWYE631610MAR04

PATIENT
  Age: 65 Year
  Sex: Female

DRUGS (4)
  1. EFFEXOR [Suspect]
     Indication: DEPRESSION
     Dosage: 150 MG
     Route: 048
     Dates: start: 20020301
  2. ASPIRIN [Concomitant]
  3. ISTIN (AMLODIPINE BESILATE) [Concomitant]
  4. ELTROXIN (LEVOTHYROXINE SODIUM) [Concomitant]

REACTIONS (2)
  - HYPERSENSITIVITY [None]
  - RASH ERYTHEMATOUS [None]
